FAERS Safety Report 7290752-8 (Version None)
Quarter: 2011Q1

REPORT INFORMATION
  Report Type: 
  Country: None (occurrence: None)
  Receive Date: 20110214
  Receipt Date: 20110203
  Transmission Date: 20110831
  Serious: Yes (Hospitalization, Other)
  Sender: FDA-Public Use
  Company Number: US-ROCHE-757951

PATIENT
  Age: 59 Year
  Sex: Female
  Weight: 58.5 kg

DRUGS (3)
  1. BONIVA [Suspect]
     Indication: OSTEOPENIA
     Route: 048
     Dates: start: 20030101
  2. DIOVAN [Concomitant]
  3. CALCIUM [Concomitant]

REACTIONS (5)
  - FEMUR FRACTURE [None]
  - TIBIA FRACTURE [None]
  - PELVIC FRACTURE [None]
  - WRIST FRACTURE [None]
  - FOOT FRACTURE [None]
